FAERS Safety Report 9300753 (Version 1)
Quarter: 2013Q2

REPORT INFORMATION
  Report Type: Spontaneous
  Country: US (occurrence: None)
  Receive Date: 20130520
  Receipt Date: 20130520
  Transmission Date: 20140414
  Serious: Yes (Other)
  Sender: FDA-Public Use
  Company Number: None

PATIENT
  Age: 11 Year
  Sex: Female
  Weight: 56 kg

DRUGS (1)
  1. CEFTRIAXONE [Suspect]
     Route: 042

REACTIONS (4)
  - Pruritus [None]
  - Burning sensation [None]
  - Erythema [None]
  - Dyspnoea [None]
